FAERS Safety Report 5628686-4 (Version None)
Quarter: 2008Q1

REPORT INFORMATION
  Report Type: 
  Country: None (occurrence: None)
  Receive Date: 20080215
  Receipt Date: 20080215
  Transmission Date: 20080703
  Serious: Yes (Other)
  Sender: FDA-Public Use
  Company Number: None

PATIENT
  Age: 55 Year
  Sex: Male
  Weight: 97.5234 kg

DRUGS (1)
  1. ICYHOT EXTRA STRENGHT CHATTEM [Suspect]
     Indication: BACK PAIN
     Dosage: ONE INCH DIAMETER ONCE TOP
     Route: 061
     Dates: start: 20080207, end: 20080207

REACTIONS (4)
  - APPLICATION SITE ERYTHEMA [None]
  - APPLICATION SITE IRRITATION [None]
  - APPLICATION SITE PAIN [None]
  - PHARMACEUTICAL PRODUCT COMPLAINT [None]
